FAERS Safety Report 7488784-X (Version None)
Quarter: 2011Q2

REPORT INFORMATION
  Report Type: 
  Country: None (occurrence: None)
  Receive Date: 20110518
  Receipt Date: 20110513
  Transmission Date: 20111010
  Serious: Yes (Hospitalization)
  Sender: FDA-Public Use
  Company Number: FR-PFIZER INC-2011091357

PATIENT
  Age: 84 Year
  Sex: Female

DRUGS (11)
  1. SERETIDE [Concomitant]
     Route: 048
  2. HEMIGOXINE NATIVELLE [Concomitant]
     Dosage: 0.125 MG
     Route: 048
  3. COUMADIN [Concomitant]
     Route: 048
  4. SERESTA [Concomitant]
     Route: 048
  5. MIRTAZAPINE [Concomitant]
     Route: 048
  6. BUMETANIDE [Concomitant]
     Dosage: 0.5 MG
     Route: 048
  7. ALDACTONE [Suspect]
     Dosage: UNK
     Route: 048
     Dates: end: 20090607
  8. EXOMUC [Concomitant]
     Route: 048
  9. DIFFU K [Concomitant]
     Route: 048
  10. COLCHICINE [Concomitant]
     Route: 048
  11. ARICEPT [Concomitant]
     Route: 048

REACTIONS (3)
  - DEHYDRATION [None]
  - HYPERKALAEMIA [None]
  - HYPONATRAEMIA [None]
